FAERS Safety Report 9884691 (Version 1)
Quarter: 2014Q1

REPORT INFORMATION
  Report Type: Spontaneous
  Country: US (occurrence: None)
  Receive Date: 20140207
  Receipt Date: 20140207
  Transmission Date: 20141002
  Serious: Yes (Other)
  Sender: FDA-Public Use
  Company Number: None

PATIENT
  Age: 68 Year
  Sex: Male

DRUGS (5)
  1. MARCAINE SPINAL [Suspect]
     Indication: SPINAL ANAESTHESIA
     Route: 037
     Dates: start: 20131220, end: 20131220
  2. CEFAZOLIN [Concomitant]
  3. MIDAZOLAM [Concomitant]
  4. ONDANSETRON [Concomitant]
  5. PROPOFOL [Concomitant]

REACTIONS (2)
  - Drug ineffective [None]
  - Anaesthetic complication [None]
